FAERS Safety Report 4422154-3 (Version None)
Quarter: 2004Q3

REPORT INFORMATION
  Report Type: 
  Country: None (occurrence: None)
  Receive Date: 20040806
  Receipt Date: 20040727
  Transmission Date: 20050211
  Serious: No
  Sender: FDA-Public Use
  Company Number: 04H-163-0268237-00

PATIENT
  Age: 41 Year
  Sex: Female

DRUGS (1)
  1. HEPARIN SODIUM [Suspect]
     Indication: ANTICOAGULANT THERAPY
     Dosage: INTRAVENOUS
     Route: 042

REACTIONS (4)
  - HEPARIN-INDUCED THROMBOCYTOPENIA [None]
  - ILIAC VEIN OCCLUSION [None]
  - PHLEBOTHROMBOSIS [None]
  - VENOUS STENOSIS [None]
